FAERS Safety Report 7121033-0 (Version None)
Quarter: 2010Q4

REPORT INFORMATION
  Report Type: 
  Country: None (occurrence: None)
  Receive Date: 20101124
  Receipt Date: 20101118
  Transmission Date: 20110411
  Serious: Yes (Death, Hospitalization, Other)
  Sender: FDA-Public Use
  Company Number: DE-CELGENEUS-062-21880-10081969

PATIENT
  Age: 24 Year
  Sex: Male
  Weight: 55.7 kg

DRUGS (6)
  1. REVLIMID [Suspect]
     Route: 048
     Dates: start: 20090701, end: 20090721
  2. REVLIMID [Suspect]
     Route: 048
     Dates: start: 20090730, end: 20090813
  3. TAVANIC [Concomitant]
     Indication: PROPHYLAXIS
     Route: 048
  4. ACYCLOVIR [Concomitant]
     Indication: PROPHYLAXIS
     Route: 048
  5. COTRIM [Concomitant]
     Indication: PROPHYLAXIS
     Route: 048
  6. FRAGMIN [Concomitant]
     Indication: THROMBOSIS PROPHYLAXIS
     Route: 058

REACTIONS (4)
  - HODGKIN'S DISEASE [None]
  - PLEURAL EFFUSION [None]
  - PRESYNCOPE [None]
  - THROMBOSIS [None]
